FAERS Safety Report 4646555-3 (Version None)
Quarter: 2005Q2

REPORT INFORMATION
  Report Type: 
  Country: None (occurrence: None)
  Receive Date: 20050427
  Receipt Date: 20041109
  Transmission Date: 20051028
  Serious: No
  Sender: FDA-Public Use
  Company Number: US-GLAXOSMITHKLINE-A0533254A

PATIENT
  Age: 54 Year
  Sex: Female

DRUGS (3)
  1. FLOVENT [Suspect]
     Indication: ASTHMA
     Dosage: 110MCG TWICE PER DAY
     Route: 055
  2. CARDIZEM CD [Concomitant]
  3. DIAZEPAM [Concomitant]

REACTIONS (4)
  - GINGIVAL BLEEDING [None]
  - LETHARGY [None]
  - NERVOUS SYSTEM DISORDER [None]
  - UPPER RESPIRATORY TRACT CONGESTION [None]
